FAERS Safety Report 4472155-4 (Version None)
Quarter: 2004Q4

REPORT INFORMATION
  Report Type: 
  Country: None (occurrence: None)
  Receive Date: 20041012
  Receipt Date: 20041004
  Transmission Date: 20050328
  Serious: Yes (Life-Threatening, Hospitalization, Other)
  Sender: FDA-Public Use
  Company Number: US-MERCK-0410USA00534

PATIENT
  Age: 58 Year
  Sex: Male

DRUGS (3)
  1. METHADONE HCL [Concomitant]
     Indication: PAIN
     Route: 065
  2. PRILOSEC [Concomitant]
     Route: 065
  3. VIOXX [Suspect]
     Route: 048

REACTIONS (7)
  - ADVERSE EVENT [None]
  - CARDIAC FAILURE CONGESTIVE [None]
  - CIRCULATORY COLLAPSE [None]
  - DYSPNOEA [None]
  - INTERNATIONAL NORMALISED RATIO INCREASED [None]
  - PERIPHERAL EMBOLISM [None]
  - PULMONARY EMBOLISM [None]
